FAERS Safety Report 6668253-7 (Version None)
Quarter: 2010Q2

REPORT INFORMATION
  Report Type: 
  Country: None (occurrence: None)
  Receive Date: 20100406
  Receipt Date: 20100325
  Transmission Date: 20101027
  Serious: No
  Sender: FDA-Public Use
  Company Number: US-JNJFOC-20100308472

PATIENT
  Sex: Female
  Weight: 54.43 kg

DRUGS (7)
  1. DURAGESIC-100 [Suspect]
     Indication: SPINAL COLUMN STENOSIS
     Route: 062
  2. DURAGESIC-100 [Suspect]
     Route: 062
  3. DURAGESIC-100 [Suspect]
     Route: 062
  4. DURAGESIC-100 [Suspect]
     Route: 062
  5. LORCET-HD [Concomitant]
     Indication: BREAKTHROUGH PAIN
     Route: 048
     Dates: start: 20020101
  6. MELOXICAM [Concomitant]
     Indication: INFLAMMATION
     Route: 048
  7. CITALOPRAM HYDROBROMIDE [Concomitant]
     Indication: DEPRESSION
     Route: 048

REACTIONS (6)
  - DRUG INEFFECTIVE [None]
  - INAPPROPRIATE SCHEDULE OF DRUG ADMINISTRATION [None]
  - PAIN [None]
  - PRODUCT QUALITY ISSUE [None]
  - WEIGHT INCREASED [None]
  - WRONG TECHNIQUE IN DRUG USAGE PROCESS [None]
